FAERS Safety Report 5224947-1 (Version None)
Quarter: 2007Q1

REPORT INFORMATION
  Report Type: 
  Country: None (occurrence: None)
  Receive Date: 20070126
  Receipt Date: 20070115
  Transmission Date: 20070707
  Serious: Yes (Hospitalization)
  Sender: FDA-Public Use
  Company Number: HQWYE750118JAN07

PATIENT
  Age: 24 Year
  Sex: Female

DRUGS (1)
  1. EFFEXOR XR [Suspect]
     Dosage: OVERDOSE AMOUNT 1200 MG
     Dates: start: 20041201, end: 20041201

REACTIONS (2)
  - DRUG EXPOSURE DURING PREGNANCY [None]
  - OVERDOSE [None]
